FAERS Safety Report 10251978 (Version 1)
Quarter: 2014Q2

REPORT INFORMATION
  Report Type: Spontaneous
  Country: US (occurrence: US)
  Receive Date: 20140623
  Receipt Date: 20140623
  Transmission Date: 20141212
  Serious: Yes (Death, Hospitalization, Other)
  Sender: FDA-Public Use
  Company Number: US-JNJFOC-20140606901

PATIENT
  Sex: 0

DRUGS (4)
  1. CLADRIBINE [Suspect]
     Indication: ACUTE MYELOID LEUKAEMIA
     Dosage: DAYS 2-6
     Route: 065
  2. CYTARABINE [Suspect]
     Indication: ACUTE MYELOID LEUKAEMIA
     Dosage: 2G/M2 DAYS 2-6
     Route: 065
  3. FILGRASTIM [Suspect]
     Indication: ACUTE MYELOID LEUKAEMIA
     Dosage: DAYS 1-6
     Route: 065
  4. MITOXANTRONE [Suspect]
     Indication: ACUTE MYELOID LEUKAEMIA
     Dosage: DAYS 2-4
     Route: 065

REACTIONS (3)
  - Death [Fatal]
  - Disease progression [Unknown]
  - Febrile neutropenia [Unknown]
